FAERS Safety Report 5916548-4 (Version None)
Quarter: 2008Q4

REPORT INFORMATION
  Report Type: 
  Country: None (occurrence: None)
  Receive Date: 20081013
  Receipt Date: 20081001
  Transmission Date: 20090506
  Serious: Yes (Death, Hospitalization)
  Sender: FDA-Public Use
  Company Number: B0540629A

PATIENT
  Age: 80 Year
  Sex: Female

DRUGS (1)
  1. ARIXTRA [Suspect]
     Indication: PULMONARY EMBOLISM
     Dosage: 7.5MG PER DAY
     Route: 058

REACTIONS (2)
  - INTRA-ABDOMINAL HAEMORRHAGE [None]
  - MALAISE [None]
